FAERS Safety Report 23533131 (Version 1)
Quarter: 2024Q1

REPORT INFORMATION
  Report Type: Spontaneous
  Country: US (occurrence: None)
  Receive Date: 20240216
  Receipt Date: 20240216
  Transmission Date: 20240410
  Serious: Yes (unspecified)
  Sender: FDA-Public Use
  Company Number: None

PATIENT
  Age: 65 Year
  Sex: Female
  Weight: 76.5 kg

DRUGS (5)
  1. RECLAST [Suspect]
     Active Substance: ZOLEDRONIC ACID
     Indication: Osteoporosis
     Dates: start: 20240208, end: 20240208
  2. DOXYCYCLINE [Concomitant]
     Active Substance: DOXYCYCLINE
  3. VITAMIN D [Concomitant]
     Active Substance: VITAMIN D NOS
  4. CALCIUM [Concomitant]
  5. TYLENOL [Concomitant]
     Active Substance: ACETAMINOPHEN

REACTIONS (7)
  - Pyrexia [None]
  - Pain [None]
  - Headache [None]
  - Scleritis [None]
  - Decreased appetite [None]
  - Gastrooesophageal reflux disease [None]
  - Feeling abnormal [None]

NARRATIVE: CASE EVENT DATE: 20240210
